FAERS Safety Report 7235860-2 (Version None)
Quarter: 2011Q1

REPORT INFORMATION
  Report Type: 
  Country: None (occurrence: None)
  Receive Date: 20110120
  Receipt Date: 20110117
  Transmission Date: 20110831
  Serious: Yes (Other)
  Sender: FDA-Public Use
  Company Number: US-ABBOTT-11P-163-0698796-00

PATIENT
  Sex: Female

DRUGS (14)
  1. MAGNESIUM [Concomitant]
     Indication: MINERAL SUPPLEMENTATION
  2. CYMBALTA [Concomitant]
     Indication: DEPRESSION
  3. SONATA [Concomitant]
     Indication: INSOMNIA
  4. ULTRACET [Concomitant]
     Indication: MIGRAINE
  5. CO Q10 [Concomitant]
     Indication: MINERAL SUPPLEMENTATION
  6. MULTI-VITAMIN [Concomitant]
     Indication: VITAMIN SUPPLEMENTATION
  7. FOLIC ACID [Concomitant]
     Indication: VITAMIN SUPPLEMENTATION
  8. HUMIRA [Suspect]
     Indication: RHEUMATOID ARTHRITIS
     Route: 058
  9. CALCIUM [Concomitant]
     Indication: MINERAL SUPPLEMENTATION
  10. VITAMIN D [Concomitant]
     Indication: VITAMIN SUPPLEMENTATION
  11. PROVIGIL [Concomitant]
     Indication: PRODUCT USED FOR UNKNOWN INDICATION
  12. VITAMIN B-12 [Concomitant]
     Indication: VITAMIN SUPPLEMENTATION
  13. HUMIRA [Suspect]
     Indication: RHEUMATOID ARTHRITIS
     Route: 058
  14. VITAMIN B [Concomitant]
     Indication: VITAMIN SUPPLEMENTATION

REACTIONS (3)
  - RESPIRATORY TRACT INFECTION [None]
  - NERVE COMPRESSION [None]
  - NEURALGIA [None]
